FAERS Safety Report 7905952-0 (Version None)
Quarter: 2011Q4

REPORT INFORMATION
  Report Type: 
  Country: None (occurrence: None)
  Receive Date: 20111110
  Receipt Date: 20111102
  Transmission Date: 20120403
  Serious: Yes (Hospitalization)
  Sender: FDA-Public Use
  Company Number: GXKR2011DE003236

PATIENT
  Sex: Male
  Weight: 41 kg

DRUGS (1)
  1. OMNITROP [Suspect]
     Indication: GROWTH HORMONE DEFICIENCY
     Dosage: 1.2 MG, QD
     Route: 058
     Dates: start: 20091027

REACTIONS (6)
  - OROPHARYNGEAL PAIN [None]
  - VOMITING [None]
  - THIRST DECREASED [None]
  - KETONURIA [None]
  - PSYCHOSOMATIC DISEASE [None]
  - DEHYDRATION [None]
